FAERS Safety Report 6146370-8 (Version None)
Quarter: 2009Q2

REPORT INFORMATION
  Report Type: 
  Country: None (occurrence: None)
  Receive Date: 20090403
  Receipt Date: 20090403
  Transmission Date: 20091009
  Serious: Yes (Hospitalization, Other)
  Sender: FDA-Public Use
  Company Number: None

PATIENT
  Age: 90 Year
  Sex: Female
  Weight: 83.9154 kg

DRUGS (1)
  1. DECADRON (DEXAMETHASONE) ROXANE LABS [Suspect]
     Indication: PLATELET COUNT DECREASED
     Dosage: 4 MG TABLET 1 A DAY
     Dates: start: 20080902

REACTIONS (8)
  - AMNESIA [None]
  - ASTHENIA [None]
  - CACHEXIA [None]
  - CONFUSIONAL STATE [None]
  - CUSHINGOID [None]
  - DEPRESSION [None]
  - DRUG WITHDRAWAL SYNDROME [None]
  - WEIGHT DECREASED [None]
